FAERS Safety Report 8471459-8 (Version None)
Quarter: 2012Q2

REPORT INFORMATION
  Report Type: 
  Country: None (occurrence: None)
  Receive Date: 20120627
  Receipt Date: 20120622
  Transmission Date: 20120825
  Serious: Yes (Death)
  Sender: FDA-Public Use
  Company Number: PHHO2010JP08495

PATIENT
  Sex: Male
  Weight: 42 kg

DRUGS (5)
  1. MAGNESIUM OXIDE [Concomitant]
     Indication: CONSTIPATION
  2. BACTROBAN [Concomitant]
     Indication: OTITIS MEDIA CHRONIC
     Dosage: UNK
  3. LOXONIN [Concomitant]
     Indication: OTITIS MEDIA CHRONIC
  4. MUCOSTA [Concomitant]
     Indication: PROPHYLAXIS
  5. TASIGNA [Suspect]
     Indication: CHRONIC MYELOID LEUKAEMIA
     Dosage: 300 MG, BID
     Route: 048
     Dates: start: 20080707

REACTIONS (1)
  - DEATH [None]
